FAERS Safety Report 5937997-4 (Version None)
Quarter: 2008Q4

REPORT INFORMATION
  Report Type: 
  Country: None (occurrence: None)
  Receive Date: 20081031
  Receipt Date: 20081022
  Transmission Date: 20090506
  Serious: Yes (Hospitalization)
  Sender: FDA-Public Use
  Company Number: JP-PFIZER INC-2008083089

PATIENT
  Age: 39 Year
  Sex: Female
  Weight: 38 kg

DRUGS (1)
  1. MEDROL [Suspect]
     Indication: RHEUMATOID ARTHRITIS

REACTIONS (2)
  - ACUTE MYOCARDIAL INFARCTION [None]
  - CARDIAC FAILURE [None]
